APPROVED DRUG PRODUCT: BUPRENORPHINE HYDROCHLORIDE
Active Ingredient: BUPRENORPHINE HYDROCHLORIDE
Strength: EQ 2MG BASE
Dosage Form/Route: TABLET;SUBLINGUAL
Application: A078633 | Product #001 | TE Code: AB
Applicant: HIKMA PHARMACEUTICALS USA INC
Approved: Oct 8, 2009 | RLD: No | RS: No | Type: RX